FAERS Safety Report 15476891 (Version 4)
Quarter: 2018Q4

REPORT INFORMATION
  Report Type: Report from Study
  Country: CO (occurrence: CO)
  Receive Date: 20181009
  Receipt Date: 20181227
  Transmission Date: 20190205
  Serious: Yes (Death, Hospitalization, Other)
  Sender: FDA-Public Use
  Company Number: CO-ASTELLAS-2018US036116

PATIENT
  Age: 80 Year
  Sex: Male
  Weight: 65 kg

DRUGS (1)
  1. ENZALUTAMIDE [Suspect]
     Active Substance: ENZALUTAMIDE
     Indication: HORMONE-REFRACTORY PROSTATE CANCER
     Route: 048
     Dates: start: 20180804, end: 20181005

REACTIONS (9)
  - Rash generalised [Recovered/Resolved]
  - Pyrexia [Recovered/Resolved]
  - Headache [Recovering/Resolving]
  - Drug hypersensitivity [Not Recovered/Not Resolved]
  - Inflammation [Recovered/Resolved]
  - Haemoglobin decreased [Recovered/Resolved]
  - Chest pain [Recovering/Resolving]
  - Back pain [Recovering/Resolving]
  - Death [Fatal]

NARRATIVE: CASE EVENT DATE: 20180804
